FAERS Safety Report 4903550-4 (Version None)
Quarter: 2006Q1

REPORT INFORMATION
  Report Type: 
  Country: None (occurrence: None)
  Receive Date: 20060203
  Receipt Date: 20060123
  Transmission Date: 20060701
  Serious: Yes (Other)
  Sender: FDA-Public Use
  Company Number: 2006011768

PATIENT
  Sex: Male

DRUGS (1)
  1. ZMAX [Suspect]
     Indication: PHARYNGOLARYNGEAL PAIN
     Dosage: 2 GRAM (2 GRAM,SINGLE DOSE)

REACTIONS (3)
  - ABDOMINAL PAIN [None]
  - BURNING SENSATION [None]
  - LOSS OF CONSCIOUSNESS [None]
